FAERS Safety Report 5347309-5 (Version None)
Quarter: 2007Q2

REPORT INFORMATION
  Report Type: 
  Country: None (occurrence: None)
  Receive Date: 20070507
  Receipt Date: 20070222
  Transmission Date: 20071010
  Serious: Yes (Hospitalization, Other)
  Sender: FDA-Public Use
  Company Number: 34681

PATIENT
  Age: 34 Year
  Sex: Female

DRUGS (8)
  1. ADRIAMYCIN PFS [Suspect]
     Indication: BREAST CANCER
     Dosage: 104 MG
     Dates: start: 20061229
  2. ADRIAMYCIN PFS [Suspect]
     Indication: BREAST CANCER
     Dosage: 104 MG
     Dates: start: 20070126
  3. PRILOSEC [Concomitant]
  4. SUDAFED 12 HOUR [Concomitant]
  5. NASONEX (MOMETASONE FUORATE) [Concomitant]
  6. EFFEXOR [Concomitant]
  7. KYTRIL [Concomitant]
  8. COMPAZINE [Concomitant]

REACTIONS (1)
  - CELLULITIS [None]
